FAERS Safety Report 21614148 (Version 1)
Quarter: 2022Q4

REPORT INFORMATION
  Report Type: Spontaneous
  Country: US (occurrence: US)
  Receive Date: 20221118
  Receipt Date: 20221118
  Transmission Date: 20230112
  Serious: No
  Sender: FDA-Public Use
  Company Number: US-GSK-US2022163545

PATIENT
  Age: 62 Year
  Sex: Female

DRUGS (1)
  1. NUCALA [Suspect]
     Active Substance: MEPOLIZUMAB
     Indication: Asthma
     Dosage: PATIENT THINKS IT WAS 1 -100 MG FIRST 2 DOSES ADMINISTERED IN ARM 3RD DOSE IN THE STOMACH
     Dates: start: 20220301, end: 20220531

REACTIONS (5)
  - Myalgia [Recovered/Resolved with Sequelae]
  - Musculoskeletal stiffness [Unknown]
  - Muscular weakness [Unknown]
  - Muscle atrophy [Unknown]
  - Product dose omission issue [Unknown]

NARRATIVE: CASE EVENT DATE: 20220301
